FAERS Safety Report 12781680 (Version 1)
Quarter: 2016Q3

REPORT INFORMATION
  Report Type: Report from Study
  Country: US (occurrence: US)
  Receive Date: 20160926
  Receipt Date: 20160926
  Transmission Date: 20161109
  Serious: Yes (Other)
  Sender: FDA-Public Use
  Company Number: PHEH2016US024302

PATIENT
  Sex: Female

DRUGS (1)
  1. GILENYA [Suspect]
     Active Substance: FINGOLIMOD HYDROCHLORIDE
     Indication: PRODUCT USED FOR UNKNOWN INDICATION
     Dosage: UNK
     Route: 048
     Dates: start: 20160317

REACTIONS (10)
  - Multiple sclerosis relapse [Unknown]
  - Limb discomfort [Unknown]
  - Temperature intolerance [Unknown]
  - Memory impairment [Unknown]
  - JC virus test positive [Unknown]
  - Pain [Unknown]
  - Fatigue [Unknown]
  - Muscular weakness [Unknown]
  - Hypotension [Unknown]
  - Weight decreased [Unknown]
